FAERS Safety Report 25283239 (Version 1)
Quarter: 2025Q2

REPORT INFORMATION
  Report Type: Spontaneous
  Country: GB (occurrence: GB)
  Receive Date: 20250508
  Receipt Date: 20250508
  Transmission Date: 20250716
  Serious: Yes (Other)
  Sender: CHATTEM
  Company Number: None

PATIENT
  Age: 35 Year
  Sex: Female
  Weight: 0 kg

DRUGS (4)
  1. FEXOFENADINE [Suspect]
     Active Substance: FEXOFENADINE HYDROCHLORIDE
     Indication: Product used for unknown indication
     Route: 065
  2. LEVOTHYROXINE [Concomitant]
     Active Substance: LEVOTHYROXINE
     Indication: Hypothyroidism
  3. METROGEL [Concomitant]
     Active Substance: METRONIDAZOLE
     Indication: Adverse drug reaction
  4. METROGEL [Concomitant]
     Active Substance: METRONIDAZOLE
     Indication: Rosacea

REACTIONS (1)
  - Amenorrhoea [Unknown]
